FAERS Safety Report 24249373 (Version 1)
Quarter: 2024Q3

REPORT INFORMATION
  Report Type: Spontaneous
  Country: US (occurrence: None)
  Receive Date: 20240823
  Receipt Date: 20240823
  Transmission Date: 20241016
  Serious: Yes (Other)
  Sender: Public
  Company Number: None

PATIENT
  Age: 74 Year
  Sex: Female

DRUGS (2)
  1. XDEMVY [Suspect]
     Active Substance: LOTILANER
     Dosage: 1 GTT DROP (S) TWICE  A DAY OPHTHALMIC
     Route: 047
  2. XDEMVY [Concomitant]
     Active Substance: LOTILANER
     Dates: start: 20240808

REACTIONS (2)
  - Periorbital swelling [None]
  - Eye swelling [None]

NARRATIVE: CASE EVENT DATE: 20240822
